FAERS Safety Report 17760251 (Version 1)
Quarter: 2020Q2

REPORT INFORMATION
  Report Type: Spontaneous
  Country: US (occurrence: US)
  Receive Date: 20200508
  Receipt Date: 20200508
  Transmission Date: 20200714
  Serious: Yes (Disabling)
  Sender: FDA-Public Use
  Company Number: None

PATIENT
  Age: 27 Year
  Sex: Female
  Weight: 86.4 kg

DRUGS (6)
  1. TOPROL XL [Concomitant]
     Active Substance: METOPROLOL SUCCINATE
  2. BUPROPION XL [Concomitant]
     Active Substance: BUPROPION
  3. CYMBALTA [Suspect]
     Active Substance: DULOXETINE HYDROCHLORIDE
     Indication: ANXIETY
     Dosage: ?          QUANTITY:1 CAPSULE(S);?
     Route: 048
     Dates: start: 20200204, end: 20200502
  4. ASHWAGANDHA [Concomitant]
     Active Substance: HERBALS
  5. SPIRONOLACTONE. [Concomitant]
     Active Substance: SPIRONOLACTONE
  6. VYVANSE [Concomitant]
     Active Substance: LISDEXAMFETAMINE DIMESYLATE

REACTIONS (31)
  - Vertigo [None]
  - Paranoia [None]
  - Heart rate increased [None]
  - Body temperature increased [None]
  - Chest discomfort [None]
  - Crying [None]
  - Product communication issue [None]
  - Muscle twitching [None]
  - Libido decreased [None]
  - Decreased appetite [None]
  - Weight increased [None]
  - Sleep disorder [None]
  - Suicidal ideation [None]
  - Agitation [None]
  - Hypersomnia [None]
  - Reflexes abnormal [None]
  - Dysaesthesia [None]
  - Packaging design issue [None]
  - Anorgasmia [None]
  - Hallucination [None]
  - Paraesthesia [None]
  - Mood swings [None]
  - Palpitations [None]
  - Hyperhidrosis [None]
  - Acne [None]
  - Dyskinesia [None]
  - Anxiety [None]
  - Nightmare [None]
  - Feeling abnormal [None]
  - Malaise [None]
  - Withdrawal syndrome [None]

NARRATIVE: CASE EVENT DATE: 20200502
